FAERS Safety Report 7006690-1 (Version None)
Quarter: 2010Q3

REPORT INFORMATION
  Report Type: 
  Country: None (occurrence: None)
  Receive Date: 20100921
  Receipt Date: 20100920
  Transmission Date: 20110219
  Serious: Yes (Other)
  Sender: FDA-Public Use
  Company Number: US-BRISTOL-MYERS SQUIBB COMPANY-15294036

PATIENT
  Age: 73 Year
  Sex: Female
  Weight: 70 kg

DRUGS (10)
  1. PRAVASTATIN SODIUM [Suspect]
     Indication: HYPERLIPIDAEMIA
     Dosage: AT HS;WITHDRAWN ON 15JUL2010
     Route: 048
     Dates: start: 20090408
  2. LIPITOR [Suspect]
     Indication: HYPERLIPIDAEMIA
     Dosage: 09FEB2009-2009 AT NIGHT, WITHDRAWN ON 15JUL10
     Route: 048
     Dates: start: 20090209, end: 20100715
  3. COENZYME Q10 [Concomitant]
     Indication: MYALGIA
  4. CENTRUM SILVER [Concomitant]
  5. MINERAL TAB [Concomitant]
  6. RETINOL [Concomitant]
  7. TOCOPHERYL ACETATE D-ALPHA [Concomitant]
  8. VITAMIN B [Concomitant]
  9. VITAMIN TAB [Concomitant]
  10. ZINC [Concomitant]

REACTIONS (4)
  - ABASIA [None]
  - ARTHRALGIA [None]
  - MUSCULAR WEAKNESS [None]
  - MYALGIA [None]
